FAERS Safety Report 4546636-9 (Version None)
Quarter: 2005Q1

REPORT INFORMATION
  Report Type: 
  Country: None (occurrence: None)
  Receive Date: 20050103
  Receipt Date: 20041209
  Transmission Date: 20050727
  Serious: Yes (Other)
  Sender: FDA-Public Use
  Company Number: JP_041205381

PATIENT
  Age: 57 Year
  Sex: Female

DRUGS (6)
  1. VINCRISTINE SULFATE [Suspect]
     Indication: B-CELL LYMPHOMA
     Dosage: 1.4 MG/M2; OTHER
     Route: 050
  2. VINCRISTINE SULFATE [Suspect]
     Indication: NON-HODGKIN'S LYMPHOMA
     Dosage: 1.4 MG/M2; OTHER
     Route: 050
  3. RITUXIMAB [Concomitant]
  4. CYCLOPHOSPHAMIDE [Concomitant]
  5. ADRIAMYCIN PFS [Concomitant]
  6. PREDNISOLONE [Concomitant]

REACTIONS (1)
  - NEUTROPENIA [None]
